FAERS Safety Report 11771500 (Version 1)
Quarter: 2015Q4

REPORT INFORMATION
  Report Type: Spontaneous
  Country: US (occurrence: None)
  Receive Date: 20151123
  Receipt Date: 20151123
  Transmission Date: 20160304
  Serious: Yes (Disabling, Other)
  Sender: FDA-Public Use
  Company Number: None

PATIENT
  Age: 29 Year
  Sex: Male
  Weight: 83.92 kg

DRUGS (4)
  1. EFFEXOR [Concomitant]
     Active Substance: VENLAFAXINE HYDROCHLORIDE
  2. THORNE MULTIVITAMIN + VIT D [Concomitant]
  3. CIPROFLOXACIN. [Suspect]
     Active Substance: CIPROFLOXACIN
     Indication: PROSTATITIS
     Dosage: 1 PILL
     Route: 048
     Dates: start: 20150426, end: 20150710
  4. FISH OIL [Concomitant]
     Active Substance: FISH OIL

REACTIONS (18)
  - Decreased appetite [None]
  - Dehydration [None]
  - Depression [None]
  - Fatigue [None]
  - Tinnitus [None]
  - Impaired healing [None]
  - Impaired work ability [None]
  - Weight decreased [None]
  - Burning sensation [None]
  - Dry eye [None]
  - Paraesthesia [None]
  - Pollakiuria [None]
  - Rash [None]
  - Dyspepsia [None]
  - Dry mouth [None]
  - Asthenia [None]
  - Diarrhoea [None]
  - Vitreous floaters [None]

NARRATIVE: CASE EVENT DATE: 20150817
